FAERS Safety Report 19208728 (Version 1)
Quarter: 2021Q2

REPORT INFORMATION
  Report Type: Spontaneous
  Country: GR (occurrence: GR)
  Receive Date: 20210504
  Receipt Date: 20210504
  Transmission Date: 20210717
  Serious: Yes (Hospitalization)
  Sender: FDA-Public Use
  Company Number: GR-MDD US OPERATIONS-MDD202104-000790

PATIENT
  Age: 17 Year
  Sex: Female

DRUGS (1)
  1. BOTULINUM TOXIN TYPE B [Suspect]
     Active Substance: RIMABOTULINUMTOXINB
     Indication: JOINT STIFFNESS
     Dosage: NOT PROVIDED

REACTIONS (2)
  - Product use in unapproved indication [Unknown]
  - Joint hyperextension [Recovered/Resolved]
